FAERS Safety Report 11994646 (Version 1)
Quarter: 2016Q1

REPORT INFORMATION
  Report Type: Spontaneous
  Country: US (occurrence: US)
  Receive Date: 20160203
  Receipt Date: 20160203
  Transmission Date: 20160526
  Serious: Yes (Hospitalization)
  Sender: FDA-Public Use
  Company Number: US-UCBSA-2015027903

PATIENT
  Sex: Male
  Weight: 89 kg

DRUGS (6)
  1. KEPPRA [Suspect]
     Active Substance: LEVETIRACETAM
     Indication: SEIZURE
     Dosage: DOSE HAS VARIED OVER THE YEARS
     Route: 048
     Dates: start: 2006
  2. OXCARBAZEPINE. [Concomitant]
     Active Substance: OXCARBAZEPINE
     Indication: SEIZURE
     Dosage: 300 MG EVERY MORNING, 600 MG EVERY BED TIME
     Dates: start: 201508
  3. LAMOTRIGINE. [Concomitant]
     Active Substance: LAMOTRIGINE
     Indication: SEIZURE
     Dosage: 400 MG, 2X/DAY (BID), START DATE: SOMETIME AFTER 2006
  4. DIMETHYL FUMARATE [Concomitant]
     Active Substance: DIMETHYL FUMARATE
     Indication: MULTIPLE SCLEROSIS
     Dosage: 240 MG, 2X/DAY (BID)
     Route: 048
     Dates: start: 201201
  5. KEPPRA [Suspect]
     Active Substance: LEVETIRACETAM
     Indication: GENERALISED TONIC-CLONIC SEIZURE
     Dosage: 3000 MG, 2X/DAY (BID)
     Route: 048
     Dates: end: 201508
  6. LORAZEPAM. [Concomitant]
     Active Substance: LORAZEPAM
     Indication: SEIZURE
     Dosage: 0.5 MG, AS NEEDED (PRN)
     Dates: start: 2010

REACTIONS (9)
  - Depression [Recovering/Resolving]
  - Drug ineffective [Unknown]
  - Communication disorder [Recovering/Resolving]
  - Seizure [Recovering/Resolving]
  - Frustration tolerance decreased [Recovering/Resolving]
  - Abdominal discomfort [Recovering/Resolving]
  - Generalised tonic-clonic seizure [Recovered/Resolved]
  - Bradyphrenia [Recovering/Resolving]
  - Mental impairment [Recovering/Resolving]

NARRATIVE: CASE EVENT DATE: 2006
